FAERS Safety Report 5221472-9 (Version None)
Quarter: 2007Q1

REPORT INFORMATION
  Report Type: 
  Country: None (occurrence: None)
  Receive Date: 20061201
  Receipt Date: 20060706
  Transmission Date: 20070707
  Serious: No
  Sender: FDA-Public Use
  Company Number: 2006PV017099

PATIENT
  Age: 33 Year
  Sex: Female
  Weight: 169.1917 kg

DRUGS (2)
  1. BYETTA [Suspect]
     Indication: DIABETES MELLITUS NON-INSULIN-DEPENDENT
     Dosage: 5 MCG;BID;SC
     Route: 058
     Dates: start: 20060628
  2. GLIPIZIDE + METFORMIN [Concomitant]

REACTIONS (2)
  - HOT FLUSH [None]
  - MEDICATION ERROR [None]
